FAERS Safety Report 19187287 (Version 2)
Quarter: 2021Q2

REPORT INFORMATION
  Report Type: Spontaneous
  Country: DE (occurrence: DE)
  Receive Date: 20210427
  Receipt Date: 20210531
  Transmission Date: 20210717
  Serious: Yes (Other)
  Sender: FDA-Public Use
  Company Number: DE-BAUSCH-BL-2021-013947

PATIENT
  Age: 6 Year
  Sex: Male
  Weight: 22 kg

DRUGS (1)
  1. ZYKLOLAT [CYCLOPENTOLATE HYDROCHLORIDE] [Suspect]
     Active Substance: CYCLOPENTOLATE HYDROCHLORIDE
     Indication: OPHTHALMOLOGICAL EXAMINATION
     Dosage: 3X 1 DROP PER EYE 60 MIN BEFORE THE MEASUREMENT, EVERY 10 MIN (60 MIN BEFORE, 50 MIN, 40 MIN)
     Route: 065
     Dates: start: 20210409, end: 20210409

REACTIONS (8)
  - Movement disorder [Recovered/Resolved]
  - Language disorder [Recovered/Resolved]
  - Amnesia [Recovered/Resolved]
  - Mydriasis [Recovered/Resolved]
  - Confusional state [Recovered/Resolved]
  - Feeling abnormal [Recovered/Resolved]
  - Neurological symptom [Recovered/Resolved]
  - Hallucination [Recovered/Resolved]

NARRATIVE: CASE EVENT DATE: 20210409
